FAERS Safety Report 5731103-7 (Version None)
Quarter: 2008Q2

REPORT INFORMATION
  Report Type: 
  Country: None (occurrence: None)
  Receive Date: 20080505
  Receipt Date: 20080429
  Transmission Date: 20081010
  Serious: Yes (Other)
  Sender: FDA-Public Use
  Company Number: 2008SP002969

PATIENT
  Age: 17 Year
  Sex: Female
  Weight: 49.4421 kg

DRUGS (1)
  1. CORICIDIN HBP COUGH + COLD (CHLORPHENIRAMINE MALEATE/DEXTROMETHORPHAN [Suspect]
     Indication: EUPHORIC MOOD
     Dosage: PO
     Route: 048
     Dates: start: 20071230, end: 20080206

REACTIONS (8)
  - COGNITIVE DISORDER [None]
  - DRUG DEPENDENCE [None]
  - EUPHORIC MOOD [None]
  - GAIT DISTURBANCE [None]
  - INSOMNIA [None]
  - INTENTIONAL DRUG MISUSE [None]
  - MUSCULOSKELETAL STIFFNESS [None]
  - SKIN DISORDER [None]
